FAERS Safety Report 8368903-3 (Version None)
Quarter: 2012Q2

REPORT INFORMATION
  Report Type: 
  Country: None (occurrence: None)
  Receive Date: 20120516
  Receipt Date: 20120509
  Transmission Date: 20120825
  Serious: Yes (Hospitalization)
  Sender: FDA-Public Use
  Company Number: USA/USA/12/0024306

PATIENT
  Age: 5 Year
  Sex: Male

DRUGS (5)
  1. LAMOTRIGINE [Suspect]
     Indication: PRODUCT USED FOR UNKNOWN INDICATION
     Dosage: 100 MG, 2 IN 1 D
  2. ARIPIPRAZOLE [Concomitant]
  3. LEVETIRACETAM [Suspect]
     Indication: CONVULSION
  4. CLORAZEPATE DIPOTASSIUM [Concomitant]
  5. VALPROIC ACID [Concomitant]

REACTIONS (23)
  - PSYCHOMOTOR HYPERACTIVITY [None]
  - COORDINATION ABNORMAL [None]
  - AFFECT LABILITY [None]
  - OPPOSITIONAL DEFIANT DISORDER [None]
  - RASH [None]
  - THROMBOCYTOPENIA [None]
  - ABNORMAL BEHAVIOUR [None]
  - HYPERSEXUALITY [None]
  - AREFLEXIA [None]
  - CONVULSION [None]
  - AGGRESSION [None]
  - GAIT DISTURBANCE [None]
  - TESTICULAR DISORDER [None]
  - CYST [None]
  - GUILLAIN-BARRE SYNDROME [None]
  - DYSKINESIA [None]
  - ATAXIA [None]
  - CONDITION AGGRAVATED [None]
  - MUSCULAR WEAKNESS [None]
  - NEUROLOGICAL SYMPTOM [None]
  - ANXIETY [None]
  - HYPOTONIA [None]
  - ALTERED VISUAL DEPTH PERCEPTION [None]
